FAERS Safety Report 23073445 (Version 2)
Quarter: 2023Q4

REPORT INFORMATION
  Report Type: Spontaneous
  Country: US (occurrence: US)
  Receive Date: 20231017
  Receipt Date: 20231026
  Transmission Date: 20240110
  Serious: Yes (Hospitalization, Other)
  Sender: FDA-Public Use
  Company Number: US-ALKEM LABORATORIES LIMITED-US-ALKEM-2023-12261

PATIENT
  Age: 62 Year
  Sex: Male

DRUGS (4)
  1. VANCOMYCIN [Suspect]
     Active Substance: VANCOMYCIN
     Indication: Product used for unknown indication
     Dosage: 1500 MILLIGRAM, BID (TWICE DAILY) ON DAY 27 OF ADMISSION
     Route: 042
  2. CEFTRIAXONE [Concomitant]
     Active Substance: CEFTRIAXONE\CEFTRIAXONE SODIUM
     Indication: Product used for unknown indication
     Dosage: 2 GRAM, QD (DAILY) ON DAY 27 OF ADMISSION
     Route: 042
  3. PALIPERIDONE [Concomitant]
     Active Substance: PALIPERIDONE
     Indication: Acute psychosis
     Dosage: UNK
     Route: 065
  4. PALIPERIDONE [Concomitant]
     Active Substance: PALIPERIDONE
     Dosage: UNK (DEPOT INJECTION) RE-INITIATION
     Route: 030

REACTIONS (3)
  - Leukopenia [Recovered/Resolved]
  - Drug level increased [Unknown]
  - Neutropenia [Recovered/Resolved]
